FAERS Safety Report 14156926 (Version 1)
Quarter: 2017Q4

REPORT INFORMATION
  Report Type: Spontaneous
  Country: US (occurrence: None)
  Receive Date: 20171102
  Receipt Date: 20171102
  Transmission Date: 20180321
  Serious: Yes (Death)
  Sender: FDA-Public Use
  Company Number: None

PATIENT
  Age: 59 Year
  Sex: Male

DRUGS (1)
  1. OPDIVO [Suspect]
     Active Substance: NIVOLUMAB
     Indication: RENAL CANCER
     Dosage: DATES OF USE/FREQUENCY - ONE TIME ONLY
     Route: 042
     Dates: start: 20170726

REACTIONS (1)
  - Death [None]

NARRATIVE: CASE EVENT DATE: 20171002
